FAERS Safety Report 9398926 (Version 5)
Quarter: 2014Q2

REPORT INFORMATION
  Report Type: Spontaneous
  Country: US (occurrence: US)
  Receive Date: 20130712
  Receipt Date: 20140506
  Transmission Date: 20141212
  Serious: Yes (Hospitalization, Other)
  Sender: FDA-Public Use
  Company Number: US-009507513-1307USA004415

PATIENT
  Sex: Female
  Weight: 68.27 kg

DRUGS (8)
  1. FOSAMAX [Suspect]
     Indication: OSTEOPOROSIS
     Dosage: 70 MG, UNK
     Route: 048
     Dates: start: 200105, end: 201007
  2. FOSAMAX PLUS D [Suspect]
     Indication: OSTEOPOROSIS
     Dosage: 70 MG/2800 IU, QW
     Route: 048
     Dates: start: 20060412, end: 20090106
  3. ACTONEL [Concomitant]
     Indication: OSTEOPOROSIS
     Dosage: 5 MG, UNK
     Route: 048
     Dates: start: 200312, end: 200604
  4. EVISTA [Concomitant]
     Indication: OSTEOPOROSIS
     Dosage: 60 MG, QD
     Route: 048
     Dates: start: 200411
  5. EVISTA [Concomitant]
     Indication: HORMONE REPLACEMENT THERAPY
  6. CALCIUM (UNSPECIFIED) [Concomitant]
     Dosage: 1200 MG, BID
     Dates: start: 2005
  7. VITAMIN D (UNSPECIFIED) [Concomitant]
     Dosage: 5000 IU, QD
     Dates: start: 2005
  8. NEXIUM [Concomitant]
     Dosage: UNK
     Dates: start: 2006, end: 2009

REACTIONS (20)
  - Femur fracture [Recovered/Resolved]
  - Intramedullary rod insertion [Unknown]
  - Vitamin D deficiency [Unknown]
  - Haemorrhoidal haemorrhage [Unknown]
  - Atrophic vulvovaginitis [Unknown]
  - Stress urinary incontinence [Unknown]
  - Urge incontinence [Unknown]
  - Thyroid disorder [Unknown]
  - Cataract [Unknown]
  - Diverticulum intestinal [Unknown]
  - Breast calcifications [Unknown]
  - Lymphadenopathy [Unknown]
  - Symphysiolysis [Unknown]
  - Blister [Unknown]
  - Post procedural haemorrhage [Unknown]
  - Post procedural swelling [Unknown]
  - Sciatica [Unknown]
  - Gastrooesophageal reflux disease [Unknown]
  - Constipation [Unknown]
  - Headache [Unknown]
